FAERS Safety Report 20468214 (Version 1)
Quarter: 2022Q1

REPORT INFORMATION
  Report Type: Spontaneous
  Country: US (occurrence: None)
  Receive Date: 20220211
  Receipt Date: 20220211
  Transmission Date: 20220423
  Serious: Yes (Hospitalization)
  Sender: FDA-Public Use
  Company Number: None

PATIENT
  Age: 62 Year
  Sex: Male

DRUGS (1)
  1. REPATHA [Suspect]
     Active Substance: EVOLOCUMAB
     Indication: Cardiac failure congestive
     Dosage: OTHER FREQUENCY : Q2W;?
     Route: 058
     Dates: start: 20210927

REACTIONS (1)
  - Stent placement [None]

NARRATIVE: CASE EVENT DATE: 20220211
